FAERS Safety Report 16246763 (Version 2)
Quarter: 2019Q2

REPORT INFORMATION
  Report Type: Report from Study
  Country: US (occurrence: US)
  Receive Date: 20190427
  Receipt Date: 20190501
  Transmission Date: 20190711
  Serious: Yes (Other)
  Sender: FDA-Public Use
  Company Number: US-ROCHE-2308718

PATIENT
  Age: 46 Year
  Sex: Male
  Weight: 73.55 kg

DRUGS (1)
  1. OCREVUS [Suspect]
     Active Substance: OCRELIZUMAB
     Indication: MULTIPLE SCLEROSIS
     Route: 065
     Dates: start: 20190408

REACTIONS (3)
  - Subcutaneous abscess [Unknown]
  - Pain [Unknown]
  - Cyst [Unknown]

NARRATIVE: CASE EVENT DATE: 20190419
